FAERS Safety Report 7583559 (Version 5)
Quarter: 2013Q1

REPORT INFORMATION
  Report Type: Spontaneous
  Country: US (occurrence: US)
  Receive Date: 20100914
  Receipt Date: 20130124
  Transmission Date: 20140127
  Serious: Yes (Hospitalization)
  Sender: FDA-Public Use
  Company Number: US-BAYER-201033137NA

PATIENT
  Age: 39 Year
  Sex: Female
  Weight: 60 kg

DRUGS (21)
  1. OCELLA [Suspect]
     Indication: PREMENSTRUAL SYNDROME
     Dosage: UNK
     Dates: start: 200810
  2. YAZ [Suspect]
     Indication: ORAL CONTRACEPTION
     Dosage: UNK UNK, QD
     Route: 048
     Dates: start: 200810, end: 200810
  3. YAZ [Suspect]
     Indication: PREMENSTRUAL SYNDROME
  4. AZITHROMYCIN [Concomitant]
     Indication: INFECTION
     Dosage: UNK
     Dates: start: 20081205, end: 20081210
  5. MAXALT [Concomitant]
     Dosage: UNK
     Dates: start: 20081027, end: 20081102
  6. MAXALT [Concomitant]
     Dosage: UNK
     Dates: start: 20081105, end: 20081205
  7. CEREBREX [Concomitant]
     Dosage: UNK
     Dates: start: 20081212
  8. LUNESTA [Concomitant]
     Indication: INSOMNIA
     Dosage: UNK
     Dates: start: 200805, end: 20090111
  9. SERTRALINE [Concomitant]
     Indication: DEPRESSION
     Dosage: UNK
     Dates: start: 200806, end: 200906
  10. NEXIUM [Concomitant]
     Indication: GASTROOESOPHAGEAL REFLUX DISEASE
     Dosage: UNK
     Route: 048
     Dates: start: 20081212, end: 200903
  11. NEXIUM [Concomitant]
     Indication: GASTROOESOPHAGEAL REFLUX DISEASE
     Dosage: 20 MG, QD
     Route: 048
  12. ASACOL [Concomitant]
     Indication: DIARRHOEA
     Dosage: UNK
     Dates: start: 20081211, end: 20090111
  13. BROMOCRIPTINE [Concomitant]
     Dosage: 2.5 MG, UNK
     Dates: start: 20081008
  14. HYDROCODONE W/APAP [Concomitant]
     Dosage: UNK
     Dates: start: 20081014
  15. TRAMADOL HYDROCHLORIDE [Concomitant]
     Dosage: 50 MG, UNK
     Dates: start: 20081015
  16. VICODIN [Concomitant]
     Dosage: 500 MG/5 MG QID PRN
     Route: 048
  17. PROTONIX [Concomitant]
     Dosage: 40 MG, QD
     Route: 048
  18. ALPRAZOLAM [Concomitant]
     Dosage: 0.25 MG, QD
     Route: 048
  19. CELEBREX [Concomitant]
     Dosage: 200 MG, QD
     Route: 048
  20. DILAUDID [Concomitant]
     Indication: PAIN
     Dosage: 1 MG, UNK
     Route: 042
  21. LORTAB [Concomitant]
     Indication: PAIN
     Dosage: 2.5/500; 2 TABLETS
     Route: 048

REACTIONS (4)
  - Pulmonary embolism [None]
  - Anxiety [None]
  - Depression [None]
  - Fear of death [None]
